FAERS Safety Report 15474091 (Version 1)
Quarter: 2018Q4

REPORT INFORMATION
  Report Type: Spontaneous
  Country: FR (occurrence: FR)
  Receive Date: 20181008
  Receipt Date: 20181008
  Transmission Date: 20190205
  Serious: Yes (Hospitalization, Other)
  Sender: FDA-Public Use
  Company Number: FR-TAKEDA-2018TEU005827

PATIENT
  Age: 74 Year
  Sex: Male
  Weight: 69 kg

DRUGS (6)
  1. KALETRA [Concomitant]
     Active Substance: LOPINAVIR\RITONAVIR
     Dosage: UNK
  2. ADANCOR [Concomitant]
     Active Substance: NICORANDIL
     Dosage: UNK
  3. COLCHICINE. [Suspect]
     Active Substance: COLCHICINE
     Indication: GOUTY ARTHRITIS
     Dosage: 0.5 MG, QD
     Route: 048
     Dates: start: 201411, end: 201411
  4. ISOPTINE [Concomitant]
     Active Substance: VERAPAMIL HYDROCHLORIDE
     Dosage: UNK
  5. ZYLORIC [Suspect]
     Active Substance: ALLOPURINOL
     Indication: GOUT
     Dosage: 200 MG, QD
     Route: 048
  6. INVIRASE [Concomitant]
     Active Substance: SAQUINAVIR MESYLATE
     Dosage: UNK

REACTIONS (1)
  - Acute kidney injury [Recovered/Resolved]

NARRATIVE: CASE EVENT DATE: 201411
